APPROVED DRUG PRODUCT: AMILORIDE HYDROCHLORIDE
Active Ingredient: AMILORIDE HYDROCHLORIDE
Strength: 5MG
Dosage Form/Route: TABLET;ORAL
Application: A079133 | Product #001 | TE Code: AB
Applicant: SIGMAPHARM LABORATORIES LLC
Approved: Jan 30, 2009 | RLD: No | RS: No | Type: RX